FAERS Safety Report 6276195-4 (Version None)
Quarter: 2009Q3

REPORT INFORMATION
  Report Type: 
  Country: None (occurrence: None)
  Receive Date: 20090722
  Receipt Date: 20090720
  Transmission Date: 20100115
  Serious: Yes (Death)
  Sender: FDA-Public Use
  Company Number: GR-BRISTOL-MYERS SQUIBB COMPANY-14523088

PATIENT
  Age: 60 Year
  Sex: Male

DRUGS (5)
  1. CETUXIMAB [Suspect]
     Indication: HEAD AND NECK CANCER
     Route: 042
     Dates: start: 20060614, end: 20060816
  2. CISPLATIN [Suspect]
     Indication: HEAD AND NECK CANCER
     Route: 042
     Dates: start: 20060614, end: 20060816
  3. RADIATION THERAPY [Suspect]
     Indication: HEAD AND NECK CANCER
     Dosage: 1 DF = 70 GY(TUMOUR AREA) + 45 GY(REST OF THE NECK)
  4. RIFINAH [Concomitant]
     Indication: PULMONARY TUBERCULOSIS
     Dosage: 900 MG:ONCE DAILY
     Route: 048
     Dates: start: 20060510, end: 20061115
  5. HUMALOG [Concomitant]
     Indication: DIABETES MELLITUS
     Dosage: INSULIN LISPRO
     Route: 058
     Dates: start: 20040615, end: 20061115

REACTIONS (1)
  - DEATH [None]
